FAERS Safety Report 6574388-X (Version None)
Quarter: 2010Q1

REPORT INFORMATION
  Report Type: 
  Country: None (occurrence: None)
  Receive Date: 20100208
  Receipt Date: 20100129
  Transmission Date: 20100710
  Serious: Yes (Hospitalization)
  Sender: FDA-Public Use
  Company Number: US-ABBOTT-10P-163-0623125-00

PATIENT
  Sex: Female
  Weight: 67.646 kg

DRUGS (5)
  1. HUMIRA [Suspect]
     Indication: CROHN'S DISEASE
     Route: 058
     Dates: start: 20091204
  2. ENTOCORT EC [Concomitant]
     Indication: CROHN'S DISEASE
  3. LOTREL [Concomitant]
     Indication: HYPERTENSION
     Dosage: 5/20MG
  4. VITAMIN B-12 [Concomitant]
     Indication: VITAMIN B12 DEFICIENCY
  5. VITAMIN D [Concomitant]
     Indication: VITAMIN D DECREASED

REACTIONS (4)
  - BLOOD TRIGLYCERIDES INCREASED [None]
  - CEREBROVASCULAR ACCIDENT [None]
  - DYSGRAPHIA [None]
  - SPEECH DISORDER [None]
